FAERS Safety Report 18573233 (Version 5)
Quarter: 2021Q3

REPORT INFORMATION
  Report Type: Spontaneous
  Country: US (occurrence: US)
  Receive Date: 20201203
  Receipt Date: 20210805
  Transmission Date: 20211014
  Serious: No
  Sender: FDA-Public Use
  Company Number: US-B.I. PHARMACEUTICALS,INC./RIDGEFIELD-2020-BI-061194

PATIENT
  Age: 60 Year
  Sex: Female

DRUGS (3)
  1. ZITHROMAX [Concomitant]
     Active Substance: AZITHROMYCIN DIHYDRATE
     Indication: PRODUCT USED FOR UNKNOWN INDICATION
  2. SPIRIVA [Suspect]
     Active Substance: TIOTROPIUM BROMIDE MONOHYDRATE
     Indication: CHRONIC OBSTRUCTIVE PULMONARY DISEASE
     Dates: start: 20170327, end: 201810
  3. SPIRIVA RESPIMAT [Suspect]
     Active Substance: TIOTROPIUM BROMIDE
     Indication: CHRONIC OBSTRUCTIVE PULMONARY DISEASE
     Dosage: 2 INHALATIONS, ONCE DAILY
     Dates: start: 20170327

REACTIONS (13)
  - Depression [Recovered/Resolved]
  - Nervous system disorder [Not Recovered/Not Resolved]
  - Injection site pain [Unknown]
  - Emotional disorder [Not Recovered/Not Resolved]
  - Wheezing [Unknown]
  - Hypertension [Not Recovered/Not Resolved]
  - Fatigue [Unknown]
  - Aphonia [Recovered/Resolved]
  - Dyspnoea [Not Recovered/Not Resolved]
  - Sinusitis [Not Recovered/Not Resolved]
  - Cough [Unknown]
  - Sinusitis [Not Recovered/Not Resolved]
  - Vaccination complication [Unknown]

NARRATIVE: CASE EVENT DATE: 202011
